FAERS Safety Report 9026053 (Version 2)
Quarter: 2012Q4

REPORT INFORMATION
  Report Type: Spontaneous
  Country: US (occurrence: None)
  Receive Date: 20121207
  Receipt Date: 20121220
  Transmission Date: 20130627
  Serious: Yes (Death)
  Sender: FDA-Public Use
  Company Number: DSA_61166_2012

PATIENT
  Sex: Female

DRUGS (2)
  1. XENAZINE [Suspect]
     Indication: HUNTINGTON^S DISEASE
     Dosage: (12.5  mg  TID  Oral)
(Unknown)
     Route: 048
     Dates: start: 2012
  2. TYLENOL /00020001/ [Concomitant]

REACTIONS (1)
  - Death [None]
